FAERS Safety Report 19118807 (Version 1)
Quarter: 2021Q2

REPORT INFORMATION
  Report Type: Spontaneous
  Country: FR (occurrence: FR)
  Receive Date: 20210409
  Receipt Date: 20210409
  Transmission Date: 20210717
  Serious: Yes (Death)
  Sender: FDA-Public Use
  Company Number: FR-B.BRAUN MEDICAL INC.-2109163

PATIENT
  Age: 38 Year
  Sex: Male

DRUGS (5)
  1. CODEINE [Concomitant]
     Active Substance: CODEINE
  2. MORPHINE [Concomitant]
     Active Substance: MORPHINE
  3. AMITRIPTYLINE [Concomitant]
     Active Substance: AMITRIPTYLINE
     Route: 065
  4. BROMAZEPAM [Concomitant]
     Active Substance: BROMAZEPAM
  5. ACETAMINOPHEN. [Suspect]
     Active Substance: ACETAMINOPHEN
     Route: 065

REACTIONS (1)
  - Death [Fatal]
